FAERS Safety Report 5501920-7 (Version None)
Quarter: 2007Q4

REPORT INFORMATION
  Report Type: 
  Country: None (occurrence: None)
  Receive Date: 20071022
  Receipt Date: 20070807
  Transmission Date: 20080405
  Serious: No
  Sender: FDA-Public Use
  Company Number: SPV1-2007-03780

PATIENT
  Age: 8 Year
  Sex: Male
  Weight: 34 kg

DRUGS (3)
  1. VYVANSE [Suspect]
     Indication: ATTENTION DEFICIT/HYPERACTIVITY DISORDER
     Dosage: 50 MG, 1XDAY:QD, ORAL
     Route: 048
     Dates: start: 20070725
  2. LEXAPRO [Concomitant]
  3. DEPAKOTE [Concomitant]

REACTIONS (2)
  - PSYCHOMOTOR HYPERACTIVITY [None]
  - SOMNOLENCE [None]
